FAERS Safety Report 23601098 (Version 1)
Quarter: 2024Q1

REPORT INFORMATION
  Report Type: Spontaneous
  Country: US (occurrence: US)
  Receive Date: 20240306
  Receipt Date: 20240306
  Transmission Date: 20240410
  Serious: Yes (Death, Hospitalization)
  Sender: FDA-Public Use
  Company Number: US-MYLANLABS-2024M1020440

PATIENT
  Age: 31 Year
  Sex: Male

DRUGS (1)
  1. PREDNISONE [Suspect]
     Active Substance: PREDNISONE
     Indication: Vasculitis
     Dosage: UNK (TAPERING FOR PROLONGED DURATION)
     Route: 065

REACTIONS (2)
  - Disseminated blastomycosis [Fatal]
  - Acute respiratory distress syndrome [Fatal]
